FAERS Safety Report 4559936-3 (Version None)
Quarter: 2005Q1

REPORT INFORMATION
  Report Type: 
  Country: None (occurrence: None)
  Receive Date: 20050124
  Receipt Date: 20050107
  Transmission Date: 20050727
  Serious: Yes (Life-Threatening)
  Sender: FDA-Public Use
  Company Number: 2005-DE-00073GD

PATIENT
  Age: 62 Year
  Sex: Male

DRUGS (5)
  1. CODEINE (CODEINE) [Suspect]
     Indication: COUGH
     Dosage: 75 MG (25 MG THREE TIMES A DAY), PO
     Route: 048
  2. CLARITHROMYCIN [Suspect]
     Indication: PNEUMONIA
  3. VORICONAZOLE (VORICONAZOLE) [Suspect]
     Indication: PNEUMONIA
  4. CEFTRIAXONE [Concomitant]
  5. VALPROIC ACID [Concomitant]

REACTIONS (8)
  - BLOOD CREATININE INCREASED [None]
  - BLOOD UREA INCREASED [None]
  - COMA [None]
  - DRUG INTERACTION [None]
  - DRUG TOXICITY [None]
  - MIOSIS [None]
  - RENAL IMPAIRMENT [None]
  - RESPIRATORY FAILURE [None]
